FAERS Safety Report 5710775-7 (Version None)
Quarter: 2008Q2

REPORT INFORMATION
  Report Type: 
  Country: None (occurrence: None)
  Receive Date: 20080418
  Receipt Date: 20080418
  Transmission Date: 20081010
  Serious: Yes (Other)
  Sender: FDA-Public Use
  Company Number: None

PATIENT
  Sex: Female
  Weight: 89.3586 kg

DRUGS (1)
  1. PROTONIX [Suspect]
     Indication: GASTROOESOPHAGEAL REFLUX DISEASE
     Dosage: 40MG ONCE PO QD
     Route: 048
     Dates: start: 20060601

REACTIONS (3)
  - ABDOMINAL PAIN UPPER [None]
  - BREAKTHROUGH PAIN [None]
  - OESOPHAGEAL PAIN [None]
